FAERS Safety Report 5252351-9 (Version None)
Quarter: 2007Q1

REPORT INFORMATION
  Report Type: 
  Country: None (occurrence: None)
  Receive Date: 20070301
  Receipt Date: 20060707
  Transmission Date: 20070707
  Serious: No
  Sender: FDA-Public Use
  Company Number: US-BRISTOL-MYERS SQUIBB COMPANY-13435623

PATIENT
  Age: 56 Year
  Sex: Female
  Weight: 77 kg

DRUGS (3)
  1. TAXOL [Suspect]
     Indication: BREAST CANCER
     Route: 042
  2. HERCEPTIN [Concomitant]
  3. DECADRON [Concomitant]
     Indication: PREMEDICATION

REACTIONS (2)
  - DYSACUSIS [None]
  - VISION BLURRED [None]
